FAERS Safety Report 4551549-2 (Version None)
Quarter: 2005Q1

REPORT INFORMATION
  Report Type: 
  Country: None (occurrence: None)
  Receive Date: 20050112
  Receipt Date: 20041115
  Transmission Date: 20050727
  Serious: Yes (Other)
  Sender: FDA-Public Use
  Company Number: 2004094522

PATIENT
  Sex: Female

DRUGS (8)
  1. CELEBREX [Suspect]
     Indication: OSTEOARTHRITIS
     Dosage: 200 MG (200 MG, 1 IN 1 D), ORAL
     Route: 048
     Dates: start: 19991123
  2. TAMOXIFEN (TAMOXIFEN) [Concomitant]
  3. ATORVASTATIN (ATORVASTATIN) [Concomitant]
  4. DIGOXIN [Concomitant]
  5. DIAIZEPAM (DIAZEPAM) [Concomitant]
  6. ASPIRIN [Concomitant]
  7. VITAMINS (VITAMINS) [Concomitant]
  8. ACETAMINOPHEN [Concomitant]

REACTIONS (9)
  - ARTHRITIS [None]
  - BREAST CANCER FEMALE [None]
  - CONDITION AGGRAVATED [None]
  - DEAFNESS UNILATERAL [None]
  - DEVICE FAILURE [None]
  - HEADACHE [None]
  - HERPES ZOSTER [None]
  - OCULAR VASCULAR DISORDER [None]
  - TINNITUS [None]
